FAERS Safety Report 8275833-4 (Version None)
Quarter: 2012Q2

REPORT INFORMATION
  Report Type: 
  Country: None (occurrence: None)
  Receive Date: 20120410
  Receipt Date: 20120410
  Transmission Date: 20120825
  Serious: Yes (Hospitalization)
  Sender: FDA-Public Use
  Company Number: None

PATIENT
  Sex: Female

DRUGS (1)
  1. ADCIRCA [Suspect]
     Dosage: 40 MG DAILY PO
     Route: 048
     Dates: start: 20100630, end: 20120405

REACTIONS (1)
  - CORONARY ARTERY OCCLUSION [None]
